FAERS Safety Report 22523384 (Version 1)
Quarter: 2023Q2

REPORT INFORMATION
  Report Type: Report from Study
  Country: US (occurrence: US)
  Receive Date: 20230606
  Receipt Date: 20230606
  Transmission Date: 20230722
  Serious: Yes (Hospitalization, Other)
  Sender: FDA-Public Use
  Company Number: US-TAKEDA-US201808398

PATIENT
  Age: 36 Year
  Sex: Female
  Weight: 54 kg

DRUGS (16)
  1. TEDUGLUTIDE [Suspect]
     Active Substance: TEDUGLUTIDE
     Indication: Short-bowel syndrome
     Dosage: 2.49 MILLIGRAM, QD
     Route: 042
     Dates: start: 20160705, end: 20160804
  2. TEDUGLUTIDE [Suspect]
     Active Substance: TEDUGLUTIDE
     Indication: Short-bowel syndrome
     Dosage: 2.49 MILLIGRAM, QD
     Route: 042
     Dates: start: 20160705, end: 20160804
  3. TEDUGLUTIDE [Suspect]
     Active Substance: TEDUGLUTIDE
     Indication: Short-bowel syndrome
     Dosage: 2.49 MILLIGRAM, QD
     Route: 042
     Dates: start: 20160705, end: 20160804
  4. TEDUGLUTIDE [Suspect]
     Active Substance: TEDUGLUTIDE
     Indication: Short-bowel syndrome
     Dosage: 2.49 MILLIGRAM, QD
     Route: 042
     Dates: start: 20160705, end: 20160804
  5. TEDUGLUTIDE [Suspect]
     Active Substance: TEDUGLUTIDE
     Dosage: 0.228 MILLIGRAM, QD
     Route: 042
     Dates: start: 20160808, end: 20170627
  6. TEDUGLUTIDE [Suspect]
     Active Substance: TEDUGLUTIDE
     Dosage: 0.228 MILLIGRAM, QD
     Route: 042
     Dates: start: 20160808, end: 20170627
  7. TEDUGLUTIDE [Suspect]
     Active Substance: TEDUGLUTIDE
     Dosage: 0.228 MILLIGRAM, QD
     Route: 042
     Dates: start: 20160808, end: 20170627
  8. TEDUGLUTIDE [Suspect]
     Active Substance: TEDUGLUTIDE
     Dosage: 0.228 MILLIGRAM, QD
     Route: 042
     Dates: start: 20160808, end: 20170627
  9. HYCET [Concomitant]
     Active Substance: ACETAMINOPHEN\HYDROCODONE BITARTRATE
     Indication: Short-bowel syndrome
  10. LOMOTIL [Concomitant]
     Active Substance: ATROPINE SULFATE\DIPHENOXYLATE HYDROCHLORIDE
     Indication: Gastrointestinal stoma complication
     Route: 065
  11. IMODIUM [Concomitant]
     Active Substance: LOPERAMIDE HYDROCHLORIDE
     Indication: Short-bowel syndrome
     Route: 065
  12. SYNTHROID [Concomitant]
     Active Substance: LEVOTHYROXINE SODIUM
     Indication: Hypoparathyroidism
     Route: 065
  13. BACTROBAN [Concomitant]
     Active Substance: MUPIROCIN\MUPIROCIN CALCIUM
     Indication: Subcutaneous abscess
     Dosage: UNK UNK, BID
     Route: 065
     Dates: start: 20180703
  14. CUTIVATE [Concomitant]
     Active Substance: FLUTICASONE PROPIONATE
     Indication: Subcutaneous abscess
     Dosage: UNK UNK, BID
     Route: 065
     Dates: start: 20180703
  15. ELIDEL [Concomitant]
     Active Substance: PIMECROLIMUS
     Indication: Subcutaneous abscess
     Dosage: UNK UNK, BID
     Route: 065
     Dates: start: 20180703
  16. KLOR-CON [Concomitant]
     Active Substance: POTASSIUM CHLORIDE
     Indication: Electrolyte substitution therapy
     Dosage: UNK UNK, QD
     Route: 048
     Dates: start: 20171103, end: 20180515

REACTIONS (1)
  - Sepsis [Recovered/Resolved]

NARRATIVE: CASE EVENT DATE: 20161006
